FAERS Safety Report 22225132 (Version 1)
Quarter: 2023Q2

REPORT INFORMATION
  Report Type: Spontaneous
  Country: JP (occurrence: JP)
  Receive Date: 20230418
  Receipt Date: 20230418
  Transmission Date: 20230722
  Serious: Yes (Death, Hospitalization, Other)
  Sender: FDA-Public Use
  Company Number: JP-DSJP-DSJ-2023-114392

PATIENT
  Age: 74 Year
  Sex: Female

DRUGS (2)
  1. EDOXABAN TOSYLATE [Suspect]
     Active Substance: EDOXABAN TOSYLATE
     Indication: Cerebral infarction
     Dosage: UNK
     Route: 048
  2. PREDNISOLONE [Concomitant]
     Active Substance: PREDNISOLONE
     Indication: Giant cell arteritis
     Dosage: 10MG/DAY
     Route: 048

REACTIONS (5)
  - Post procedural haemorrhage [Recovered/Resolved]
  - Aortic dissection [Unknown]
  - COVID-19 [Unknown]
  - Aortic thrombosis [Unknown]
  - Cerebral infarction [Fatal]
